FAERS Safety Report 18916448 (Version 1)
Quarter: 2021Q1

REPORT INFORMATION
  Report Type: Report from Study
  Country: FR (occurrence: FR)
  Receive Date: 20210219
  Receipt Date: 20210219
  Transmission Date: 20210420
  Serious: Yes (Congenital Anomaly, Other)
  Sender: FDA-Public Use
  Company Number: FR-MYLANLABS-2021M1009811

PATIENT
  Sex: Male

DRUGS (5)
  1. ZIDOVUDINE. [Suspect]
     Active Substance: ZIDOVUDINE
     Indication: HIV INFECTION
     Dosage: UNK (COURSE 1)
     Route: 064
     Dates: start: 20060426
  2. LOPINAVIR/RITONAVIR [Suspect]
     Active Substance: LOPINAVIR\RITONAVIR
     Indication: HIV INFECTION
     Dosage: UNK (COURSE 1)
     Route: 064
     Dates: start: 20061018
  3. LAMIVUDINE. [Suspect]
     Active Substance: LAMIVUDINE
     Indication: HIV INFECTION
     Dosage: UNK (COURSE 1)
     Route: 064
     Dates: start: 20060426
  4. VIRACEPT [Suspect]
     Active Substance: NELFINAVIR MESYLATE
     Indication: HIV INFECTION
     Dosage: UNK (COURSE 1)
     Route: 064
     Dates: start: 20060610, end: 20061018
  5. STOCRIN [Suspect]
     Active Substance: EFAVIRENZ
     Indication: HIV INFECTION
     Dosage: UNK (COURSE 1)
     Route: 064
     Dates: start: 20060426

REACTIONS (4)
  - Sickle cell disease [Unknown]
  - Splenomegaly [Unknown]
  - Hepatic cyst [Unknown]
  - Foetal exposure during pregnancy [Recovered/Resolved]
